FAERS Safety Report 8954448 (Version 1)
Quarter: 2012Q4

REPORT INFORMATION
  Report Type: 
  Country: GB (occurrence: GB)
  Receive Date: 20121210
  Receipt Date: 20121210
  Transmission Date: 20130627
  Serious: Yes (Disabling)
  Sender: FDA-Public Use
  Company Number: GB-US-EMD SERONO, INC.-7179493

PATIENT
  Age: 49 Year
  Sex: Female

DRUGS (3)
  1. REBIF [Suspect]
     Indication: PRODUCT USED FOR UNKNOWN INDICATION
     Route: 058
     Dates: start: 20110606
  2. ZIMAVANE (ZIMOVANE) [Concomitant]
     Indication: PRODUCT USED FOR UNKNOWN INDICATION
  3. TAMAZIPAM (TEMAZEPAM) [Concomitant]
     Indication: PRODUCT USED FOR UNKNOWN INDICATION

REACTIONS (3)
  - Nausea [Not Recovered/Not Resolved]
  - Gamma-glutamyltransferase increased [Unknown]
  - Vomiting [Unknown]
